FAERS Safety Report 4704630-9 (Version None)
Quarter: 2005Q2

REPORT INFORMATION
  Report Type: 
  Country: None (occurrence: None)
  Receive Date: 20050629
  Receipt Date: 20050620
  Transmission Date: 20051028
  Serious: Yes (Life-Threatening)
  Sender: FDA-Public Use
  Company Number: 2005-06-1324

PATIENT
  Age: 72 Year
  Sex: Male
  Weight: 58 kg

DRUGS (5)
  1. CLARITIN [Suspect]
     Indication: SEASONAL ALLERGY
     Dosage: 10 MG ORAL
     Route: 048
     Dates: start: 20050310, end: 20050411
  2. NU-LOTAN (LOSARTRAN POTASSIUM) TABLETS [Suspect]
     Dosage: ORAL
     Route: 048
     Dates: start: 20050310, end: 20050405
  3. OMEPRAL (OMEPRAZOLE) TABLETS [Suspect]
     Dosage: ORAL
     Route: 048
     Dates: start: 20030410, end: 20050411
  4. AMARYL [Suspect]
     Dosage: ORAL
     Route: 048
     Dates: start: 20031105, end: 20050411
  5. . [Suspect]

REACTIONS (4)
  - ASPARTATE AMINOTRANSFERASE INCREASED [None]
  - BLOOD BILIRUBIN INCREASED [None]
  - JAUNDICE [None]
  - LIVER DISORDER [None]
